FAERS Safety Report 14833058 (Version 1)
Quarter: 2018Q2

REPORT INFORMATION
  Report Type: Spontaneous
  Country: US (occurrence: US)
  Receive Date: 20180501
  Receipt Date: 20180501
  Transmission Date: 20180711
  Serious: No
  Sender: FDA-Public Use
  Company Number: US-EPIC PHARMA LLC-2017EPC00135

PATIENT
  Sex: Male

DRUGS (6)
  1. PRILOSEC [Suspect]
     Active Substance: OMEPRAZOLE MAGNESIUM
  2. ATENOLOL (MYLAN) [Suspect]
     Active Substance: ATENOLOL
  3. TRAMADOL (TEVA) [Suspect]
     Active Substance: TRAMADOL
  4. ALPRAZOLAM (SANDOZ) [Suspect]
     Active Substance: ALPRAZOLAM
  5. AMLODIPINE [Suspect]
     Active Substance: AMLODIPINE BESYLATE
  6. XANAX [Suspect]
     Active Substance: ALPRAZOLAM

REACTIONS (3)
  - Dizziness [Unknown]
  - Drug interaction [Unknown]
  - Asthenia [Unknown]
